FAERS Safety Report 8668447 (Version 3)
Quarter: 2013Q2

REPORT INFORMATION
  Report Type: Spontaneous
  Country: DE (occurrence: DE)
  Receive Date: 20120717
  Receipt Date: 20130404
  Transmission Date: 20140414
  Serious: Yes (Death)
  Sender: FDA-Public Use
  Company Number: DE-PFIZER INC-2012158199

PATIENT
  Age: 52 Year
  Sex: Female

DRUGS (12)
  1. DIAZEPAM [Suspect]
     Dosage: UNK
  2. AMLODIPINE BESILATE [Interacting]
     Dosage: 2.5MG, UNK
  3. AMLODIPINE BESILATE [Interacting]
     Dosage: 7.5MG, UNK
  4. AMLODIPINE BESILATE [Interacting]
     Dosage: 10MG, UNK
  5. OLANZAPINE [Interacting]
     Dosage: UNK
  6. IBUPROFEN [Interacting]
     Dosage: UNK
  7. DOXEPIN [Interacting]
     Indication: MENTAL DISORDER
     Dosage: 25MG, DAILY
  8. DOXEPIN [Interacting]
     Dosage: 100MG, DAILY
  9. DOXEPIN [Interacting]
     Dosage: 125MG, DAILY
  10. PROTHIPENDYL [Interacting]
     Dosage: DOUBLE DOSAGE, AT NIGHT
  11. TILIDINE [Interacting]
     Dosage: UNK
  12. METOPROLOL [Interacting]
     Dosage: UNK

REACTIONS (7)
  - Drug interaction [Fatal]
  - Toxicity to various agents [Fatal]
  - Gait disturbance [Unknown]
  - Lethargy [Unknown]
  - Drooling [Unknown]
  - Pain [Unknown]
  - Insomnia [Unknown]
